FAERS Safety Report 12697588 (Version 1)
Quarter: 2016Q3

REPORT INFORMATION
  Report Type: Spontaneous
  Country: US (occurrence: None)
  Receive Date: 20160829
  Receipt Date: 20160829
  Transmission Date: 20161109
  Serious: Yes (Hospitalization)
  Sender: FDA-Public Use
  Company Number: None

PATIENT
  Age: 7 Year
  Sex: Male
  Weight: 23.2 kg

DRUGS (9)
  1. DULERA [Concomitant]
     Active Substance: FORMOTEROL FUMARATE DIHYDRATE\MOMETASONE FUROATE
  2. PULMOZYME [Concomitant]
     Active Substance: DORNASE ALFA
  3. OMEPRAZOLE. [Concomitant]
     Active Substance: OMEPRAZOLE
  4. CREON [Concomitant]
     Active Substance: PANCRELIPASE AMYLASE\PANCRELIPASE LIPASE\PANCRELIPASE PROTEASE
  5. CIPRO [Concomitant]
     Active Substance: CIPROFLOXACIN HYDROCHLORIDE
  6. HYPERTONIC SALINE [Concomitant]
     Active Substance: SODIUM CHLORIDE
  7. FERROUS SULFATE 75MG/ML [Suspect]
     Active Substance: FERROUS SULFATE
     Indication: MINERAL SUPPLEMENTATION
     Route: 048
     Dates: start: 20160810, end: 20160812
  8. ALBUTEROL. [Concomitant]
     Active Substance: ALBUTEROL
  9. INHALED COLISTIN [Concomitant]

REACTIONS (2)
  - Burkholderia test positive [None]
  - Sputum culture positive [None]

NARRATIVE: CASE EVENT DATE: 20160810
